FAERS Safety Report 6724866-5 (Version None)
Quarter: 2010Q2

REPORT INFORMATION
  Report Type: 
  Country: None (occurrence: None)
  Receive Date: 20100513
  Receipt Date: 20100513
  Transmission Date: 20101027
  Serious: Yes (Other)
  Sender: FDA-Public Use
  Company Number: None

PATIENT

DRUGS (1)
  1. ENTOCORT EC [Suspect]
     Indication: DIARRHOEA
     Dosage: I STARTED WITH 3 DAY NO TAKE 1 DAY
     Dates: start: 20091101

REACTIONS (2)
  - ABDOMINAL DISTENSION [None]
  - OEDEMA PERIPHERAL [None]
